FAERS Safety Report 22040260 (Version 6)
Quarter: 2025Q2

REPORT INFORMATION
  Report Type: Spontaneous
  Country: US (occurrence: US)
  Receive Date: 20230227
  Receipt Date: 20250428
  Transmission Date: 20250716
  Serious: Yes (Other)
  Sender: PFIZER
  Company Number: US-PFIZER INC-PV202300034611

PATIENT
  Age: 73 Year
  Sex: Female
  Weight: 60.78 kg

DRUGS (3)
  1. IBRANCE [Suspect]
     Active Substance: PALBOCICLIB
     Indication: Breast cancer metastatic
  2. IBRANCE [Suspect]
     Active Substance: PALBOCICLIB
  3. IBRANCE [Suspect]
     Active Substance: PALBOCICLIB

REACTIONS (7)
  - Malignant neoplasm progression [Unknown]
  - Breast cancer metastatic [Unknown]
  - Cancer pain [Unknown]
  - Tendon injury [Unknown]
  - Peroneal nerve palsy [Unknown]
  - Illness [Unknown]
  - Diarrhoea [Unknown]
